FAERS Safety Report 6136092-1 (Version None)
Quarter: 2009Q1

REPORT INFORMATION
  Report Type: 
  Country: None (occurrence: None)
  Receive Date: 20090330
  Receipt Date: 20090323
  Transmission Date: 20090719
  Serious: Yes (Other)
  Sender: FDA-Public Use
  Company Number: US-AMGEN-KDL340144

PATIENT
  Sex: Male
  Weight: 75.8 kg

DRUGS (15)
  1. PROCRIT [Suspect]
     Indication: ANAEMIA
     Route: 058
  2. PLAVIX [Concomitant]
     Route: 048
  3. OMEPRAZOLE [Concomitant]
     Route: 048
  4. LEVOTHYROXINE [Concomitant]
     Route: 048
  5. LISINOPRIL [Concomitant]
     Route: 048
  6. ISOSORBIDE [Concomitant]
     Route: 048
  7. ASPIRIN [Concomitant]
     Route: 048
  8. METOPROLOL [Concomitant]
     Route: 048
  9. DOXAZOSIN MESYLATE [Concomitant]
     Route: 048
  10. GLIPIZIDE [Concomitant]
     Route: 048
  11. CRESTOR [Concomitant]
     Route: 048
  12. ALLOPURINOL [Concomitant]
     Route: 048
  13. LYRICA [Concomitant]
     Route: 048
  14. CYMBALTA [Concomitant]
     Route: 048
  15. LANTUS [Concomitant]
     Route: 058

REACTIONS (2)
  - HAEMOGLOBIN DECREASED [None]
  - LOSS OF CONSCIOUSNESS [None]
